FAERS Safety Report 12194609 (Version 1)
Quarter: 2016Q1

REPORT INFORMATION
  Report Type: Spontaneous
  Country: US (occurrence: US)
  Receive Date: 20160321
  Receipt Date: 20160321
  Transmission Date: 20160526
  Serious: No
  Sender: FDA-Public Use
  Company Number: US-TEVA-639271ACC

PATIENT
  Age: 31 Year
  Sex: Female
  Weight: 74.91 kg

DRUGS (2)
  1. ALBUTEROL INHALER [Concomitant]
     Active Substance: ALBUTEROL
     Indication: ASTHMA
  2. PLAN B ONE-STEP [Suspect]
     Active Substance: LEVONORGESTREL
     Indication: POST COITAL CONTRACEPTION
     Dates: start: 20160220, end: 20160220

REACTIONS (1)
  - Vaginal haemorrhage [Not Recovered/Not Resolved]

NARRATIVE: CASE EVENT DATE: 20160220
